FAERS Safety Report 6999774-5 (Version None)
Quarter: 2010Q3

REPORT INFORMATION
  Report Type: 
  Country: None (occurrence: None)
  Receive Date: 20100920
  Receipt Date: 20100215
  Transmission Date: 20110219
  Serious: Yes (Other)
  Sender: FDA-Public Use
  Company Number: US-ASTRAZENECA-2010SE06533

PATIENT
  Age: 52 Year
  Sex: Female
  Weight: 65.8 kg

DRUGS (6)
  1. SEROQUEL [Suspect]
     Indication: BIPOLAR I DISORDER
     Dosage: UNKNOWN DOSE AND FREQUENCY
     Route: 048
  2. SEROQUEL [Suspect]
     Route: 048
  3. DEPAKOTE [Concomitant]
  4. TOPAMAX [Concomitant]
  5. CLONOPIN [Concomitant]
  6. LAMICTAL [Concomitant]

REACTIONS (2)
  - FATIGUE [None]
  - SUICIDAL IDEATION [None]
